FAERS Safety Report 8619548 (Version 3)
Quarter: 2013Q2

REPORT INFORMATION
  Report Type: Spontaneous
  Country: US (occurrence: US)
  Receive Date: 20120618
  Receipt Date: 20130408
  Transmission Date: 20140414
  Serious: Yes (Other)
  Sender: FDA-Public Use
  Company Number: PHEH2012US011899

PATIENT
  Sex: Male

DRUGS (2)
  1. GILENYA [Suspect]
     Indication: MULTIPLE SCLEROSIS
     Dosage: 0.5 MG, QD
     Route: 048
     Dates: start: 20111231, end: 20130402
  2. FAMPRIDINE [Concomitant]
     Dosage: 10 MG, BID

REACTIONS (7)
  - Visual field defect [Unknown]
  - Tunnel vision [Not Recovered/Not Resolved]
  - Hypertension [Unknown]
  - Vision blurred [Unknown]
  - Back pain [Unknown]
  - Cough [Unknown]
  - Headache [Unknown]
